FAERS Safety Report 4905947-5 (Version None)
Quarter: 2006Q1

REPORT INFORMATION
  Report Type: 
  Country: None (occurrence: None)
  Receive Date: 20060206
  Receipt Date: 20060127
  Transmission Date: 20060701
  Serious: Yes (Other)
  Sender: FDA-Public Use
  Company Number: 2006013430

PATIENT
  Age: 2 Year
  Sex: Male

DRUGS (1)
  1. SUDAFED COLD + SINUS (PARACETAMOL, PSEUDOEPHEDRINE) [Suspect]
     Indication: ACCIDENTAL EXPOSURE
     Dosage: 4 LIQUIDCAPS ONCE, ORAL
     Route: 048
     Dates: start: 20060127, end: 20060127

REACTIONS (2)
  - ACCIDENTAL DRUG INTAKE BY CHILD [None]
  - IRRITABILITY [None]
